FAERS Safety Report 7199173-X (Version None)
Quarter: 2010Q4

REPORT INFORMATION
  Report Type: 
  Country: None (occurrence: None)
  Receive Date: 20101215
  Receipt Date: 20101202
  Transmission Date: 20110411
  Serious: Yes (Other)
  Sender: FDA-Public Use
  Company Number: 010997

PATIENT
  Sex: Female

DRUGS (8)
  1. KEPPRA [Suspect]
     Indication: EPILEPSY
     Dosage: (1000 MG), (1000 MG)
     Dates: end: 20100121
  2. KEPPRA [Suspect]
     Indication: EPILEPSY
     Dosage: (1000 MG), (1000 MG)
     Dates: start: 20100101
  3. PRENATAL VITAMINS /01549301/ [Suspect]
     Indication: VITAMIN SUPPLEMENTATION
     Dosage: (ORAL)
     Route: 048
     Dates: end: 20100101
  4. VITAMIN TAB [Concomitant]
  5. FIORICET [Concomitant]
  6. MAALOX /00082501/ [Concomitant]
  7. BENADRIL /00000402/ [Concomitant]
  8. MAGNESIUM CITRATE [Concomitant]

REACTIONS (7)
  - CAESAREAN SECTION [None]
  - DRUG EXPOSURE DURING PREGNANCY [None]
  - DYSPEPSIA [None]
  - GESTATIONAL DIABETES [None]
  - HEADACHE [None]
  - MALAISE [None]
  - UTERINE CONTRACTIONS DURING PREGNANCY [None]
